FAERS Safety Report 13515359 (Version 1)
Quarter: 2017Q2

REPORT INFORMATION
  Report Type: Spontaneous
  Country: None (occurrence: US)
  Receive Date: 20170504
  Receipt Date: 20170504
  Transmission Date: 20170830
  Serious: No
  Sender: FDA-Public Use
  Company Number: US-BAUSCH-BL-2016-020921

PATIENT
  Age: 68 Year
  Sex: Male
  Weight: 95.34 kg

DRUGS (4)
  1. ZYCLARA [Suspect]
     Active Substance: IMIQUIMOD
     Indication: SKIN PAPILLOMA
     Dosage: ONCE DAILY BEFORE BEDTIME OVER THE AFFECTED AREA
     Route: 061
     Dates: start: 201509
  2. LISINOPRIL. [Concomitant]
     Active Substance: LISINOPRIL
     Indication: HYPERTENSION
     Dosage: 2 TABLETS DAILY
     Route: 048
  3. CELEBREX [Concomitant]
     Active Substance: CELECOXIB
     Indication: ARTHRITIS
     Route: 048
  4. FINASTERIDE. [Concomitant]
     Active Substance: FINASTERIDE
     Indication: BENIGN PROSTATIC HYPERPLASIA
     Route: 048

REACTIONS (1)
  - Off label use [Unknown]

NARRATIVE: CASE EVENT DATE: 201509
